FAERS Safety Report 17226010 (Version 1)
Quarter: 2020Q1

REPORT INFORMATION
  Report Type: Spontaneous
  Country: SE (occurrence: SE)
  Receive Date: 20200102
  Receipt Date: 20200102
  Transmission Date: 20200409
  Serious: Yes (Hospitalization)
  Sender: FDA-Public Use
  Company Number: SE-MYLANLABS-2019M1131660

PATIENT
  Age: 23 Year
  Sex: Male

DRUGS (1)
  1. LERGIGAN (PROMETHAZINE) [Suspect]
     Active Substance: PROMETHAZINE HYDROCHLORIDE
     Indication: PRODUCT USED FOR UNKNOWN INDICATION
     Dosage: 625 MILLIGRAM
     Route: 048
     Dates: start: 20180427, end: 20180427

REACTIONS (4)
  - Intentional overdose [Unknown]
  - Psychomotor hyperactivity [Unknown]
  - Intentional self-injury [Unknown]
  - Vomiting [Unknown]

NARRATIVE: CASE EVENT DATE: 20180427
